FAERS Safety Report 6061343-1 (Version None)
Quarter: 2009Q1

REPORT INFORMATION
  Report Type: 
  Country: None (occurrence: None)
  Receive Date: 20090202
  Receipt Date: 20090123
  Transmission Date: 20090719
  Serious: Yes (Hospitalization)
  Sender: FDA-Public Use
  Company Number: FR-ABBOTT-09P-056-0497923-00

PATIENT
  Sex: Male

DRUGS (11)
  1. KALETRA [Suspect]
     Indication: HIV INFECTION
     Route: 048
     Dates: start: 20081125, end: 20081126
  2. SULFADIAZINE [Suspect]
     Indication: CEREBRAL TOXOPLASMOSIS
     Dosage: FORM: 500 MILLIGRAM TABLETS
     Route: 048
     Dates: start: 20081114, end: 20081121
  3. SULFADIAZINE [Suspect]
     Dates: start: 20081122, end: 20081126
  4. PYRIMETHAMINE [Suspect]
     Indication: CEREBRAL TOXOPLASMOSIS
     Dosage: FORM: 50 MILLIGRAMS
     Route: 048
     Dates: start: 20081114, end: 20081126
  5. FOLIC ACID [Concomitant]
     Indication: VITAMIN SUPPLEMENTATION
     Route: 048
  6. ZIDOVUDINE [Concomitant]
     Indication: HIV INFECTION
     Route: 048
  7. LAMIVUDINE [Concomitant]
     Indication: HIV INFECTION
     Route: 048
     Dates: start: 20081125, end: 20081126
  8. ENFUVIRTIDE [Concomitant]
     Indication: HIV INFECTION
     Route: 042
     Dates: start: 20081125, end: 20081126
  9. AMPHOTERICIN B [Concomitant]
     Indication: ORAL CANDIDIASIS
     Route: 002
     Dates: start: 20081118, end: 20081126
  10. FLUCONAZOLE [Concomitant]
     Indication: ORAL CANDIDIASIS
     Route: 048
     Dates: start: 20081121, end: 20081126
  11. METHYLPREDNISOLONE ACETATE [Concomitant]
     Indication: CEREBRAL TOXOPLASMOSIS
     Route: 048
     Dates: start: 20081114

REACTIONS (2)
  - CYTOLYTIC HEPATITIS [None]
  - HEPATITIS CHOLESTATIC [None]
